FAERS Safety Report 7802582-6 (Version None)
Quarter: 2011Q4

REPORT INFORMATION
  Report Type: 
  Country: None (occurrence: None)
  Receive Date: 20111007
  Receipt Date: 20110923
  Transmission Date: 20120403
  Serious: Yes (Hospitalization, Other)
  Sender: FDA-Public Use
  Company Number: CA-ROCHE-792407

PATIENT
  Sex: Male
  Weight: 91 kg

DRUGS (13)
  1. AMLODIPINE [Concomitant]
     Indication: HYPERTENSION
     Dosage: DRUG REPORTED AS MYLAN- AMILODIPINE
  2. FLUDARABINE PHOSPHATE [Concomitant]
  3. ACYCLOVIR [Concomitant]
     Dosage: DRUG REPORTED AS MYLAN-ACYCLOVIR
  4. SULFATRIM [Concomitant]
     Dosage: DRUG REPORTED AS APO SULFATRIM
  5. METHYLPREDNISOLONE [Concomitant]
     Indication: PREMEDICATION
     Route: 042
     Dates: start: 20110719, end: 20110719
  6. MABTHERA [Suspect]
     Route: 042
  7. CHLORTHALIDONE [Concomitant]
     Indication: HYPERTENSION
  8. DIPHENHYDRAMINE HYDROCHLORIDE [Concomitant]
     Indication: PREMEDICATION
     Route: 048
     Dates: start: 20110719, end: 20110719
  9. ACETAMINOPHEN [Concomitant]
     Indication: PREMEDICATION
     Route: 048
     Dates: start: 20110719, end: 20110719
  10. ASPIRIN [Concomitant]
     Indication: ISCHAEMIC HEART DISEASE PROPHYLAXIS
     Route: 048
  11. CYCLOSPORINE [Concomitant]
     Indication: CHRONIC LYMPHOCYTIC LEUKAEMIA
  12. MABTHERA [Suspect]
     Indication: CHRONIC LYMPHOCYTIC LEUKAEMIA
     Dosage: FREQUENCY: 4 WEEKS
     Route: 042
  13. ZYLOPRIM [Concomitant]
     Dosage: DRUG REPORTED AS ZYLOTRIM

REACTIONS (3)
  - RENAL FAILURE ACUTE [None]
  - ILL-DEFINED DISORDER [None]
  - TUMOUR LYSIS SYNDROME [None]
